FAERS Safety Report 5933521-0 (Version None)
Quarter: 2008Q4

REPORT INFORMATION
  Report Type: 
  Country: None (occurrence: None)
  Receive Date: 20081028
  Receipt Date: 20081028
  Transmission Date: 20090506
  Serious: Yes (Hospitalization)
  Sender: FDA-Public Use
  Company Number: None

PATIENT
  Sex: Female

DRUGS (3)
  1. RISPERIDONE [Suspect]
     Indication: ANXIETY
     Dosage: 0.5MG 1/2 TAB QD PO
     Route: 048
     Dates: start: 20080714, end: 20080720
  2. RISPERIDONE [Suspect]
     Indication: PSYCHOTIC DISORDER
     Dosage: 0.5MG 1/2 TAB QD PO
     Route: 048
     Dates: start: 20080714, end: 20080720
  3. RISPERDAL [Suspect]

REACTIONS (3)
  - ANXIETY [None]
  - PARANOIA [None]
  - THERAPEUTIC RESPONSE UNEXPECTED WITH DRUG SUBSTITUTION [None]
